FAERS Safety Report 13444907 (Version 1)
Quarter: 2017Q2

REPORT INFORMATION
  Report Type: Spontaneous
  Country: US (occurrence: US)
  Receive Date: 20170414
  Receipt Date: 20170414
  Transmission Date: 20170830
  Serious: Yes (Other)
  Sender: FDA-Public Use
  Company Number: US-ASTRAZENECA-2017SE20715

PATIENT
  Age: 893 Month
  Sex: Female
  Weight: 69.9 kg

DRUGS (7)
  1. METOPROLOL. [Suspect]
     Active Substance: METOPROLOL
     Indication: BLOOD PRESSURE ABNORMAL
     Route: 048
  2. ZETIA [Concomitant]
     Active Substance: EZETIMIBE
     Indication: BLOOD CHOLESTEROL ABNORMAL
  3. FASLODEX [Suspect]
     Active Substance: FULVESTRANT
     Indication: BREAST CANCER METASTATIC
     Route: 030
     Dates: start: 20170216
  4. FASLODEX [Suspect]
     Active Substance: FULVESTRANT
     Indication: ASCITES
     Route: 030
     Dates: start: 20170216
  5. PROBIOTICS [Concomitant]
     Active Substance: PROBIOTICS NOS
  6. IBRANCE [Suspect]
     Active Substance: PALBOCICLIB
     Indication: BREAST CANCER METASTATIC
     Route: 048
     Dates: start: 20170216
  7. IBRANCE [Suspect]
     Active Substance: PALBOCICLIB
     Indication: ASCITES
     Route: 048
     Dates: start: 20170216

REACTIONS (10)
  - Nausea [Not Recovered/Not Resolved]
  - Ascites [Unknown]
  - Dizziness [Not Recovered/Not Resolved]
  - Diarrhoea [Not Recovered/Not Resolved]
  - Vomiting [Recovered/Resolved]
  - Asthenia [Not Recovered/Not Resolved]
  - Off label use [Unknown]
  - Intentional product misuse [Not Recovered/Not Resolved]
  - Breast cancer metastatic [Unknown]
  - Product use in unapproved indication [Unknown]

NARRATIVE: CASE EVENT DATE: 201702
